FAERS Safety Report 8434383-2 (Version None)
Quarter: 2012Q2

REPORT INFORMATION
  Report Type: 
  Country: None (occurrence: None)
  Receive Date: 20120613
  Receipt Date: 20120606
  Transmission Date: 20120825
  Serious: Yes (Hospitalization, Other)
  Sender: FDA-Public Use
  Company Number: US-AMGEN-USASP2011055958

PATIENT
  Age: 20 Year
  Sex: Female
  Weight: 74.376 kg

DRUGS (2)
  1. NEUPOGEN [Suspect]
     Indication: INFANTILE GENETIC AGRANULOCYTOSIS
     Dosage: 300 MUG, BID
     Route: 058
     Dates: start: 19910101
  2. NEUPOGEN [Suspect]
     Dosage: 300 MUG, BID
     Route: 058
     Dates: start: 20111027

REACTIONS (5)
  - CAESAREAN SECTION [None]
  - SKIN INFECTION [None]
  - NEUTROPENIA [None]
  - FURUNCLE [None]
  - INFECTION [None]
